FAERS Safety Report 25856533 (Version 2)
Quarter: 2025Q4

REPORT INFORMATION
  Report Type: Spontaneous
  Country: US (occurrence: US)
  Receive Date: 20250929
  Receipt Date: 20251013
  Transmission Date: 20260118
  Serious: No
  Sender: AMGEN
  Company Number: US-AMGEN-USASP2025179777

PATIENT
  Age: 55 Year
  Sex: Female

DRUGS (1)
  1. REPATHA [Suspect]
     Active Substance: EVOLOCUMAB
     Indication: Product used for unknown indication
     Dosage: 140 MILLIGRAM, Q2WK
     Route: 065
     Dates: start: 20250710

REACTIONS (10)
  - Chronic obstructive pulmonary disease [Unknown]
  - Vision blurred [Not Recovered/Not Resolved]
  - Alopecia [Unknown]
  - Weight decreased [Unknown]
  - Infusion site bruising [Unknown]
  - Blood triglycerides increased [Unknown]
  - Drug dose omission by device [Unknown]
  - Exposure to chemical pollution [Unknown]
  - Arthritis [Not Recovered/Not Resolved]
  - Nasopharyngitis [Not Recovered/Not Resolved]

NARRATIVE: CASE EVENT DATE: 20250905
